FAERS Safety Report 22712420 (Version 2)
Quarter: 2023Q4

REPORT INFORMATION
  Report Type: Spontaneous
  Country: JP (occurrence: JP)
  Receive Date: 20230717
  Receipt Date: 20231215
  Transmission Date: 20240110
  Serious: Yes (Death)
  Sender: FDA-Public Use
  Company Number: JP-NShinyaku-EVA202304056ZZLILLY

PATIENT
  Age: 1 Year
  Sex: Male
  Weight: 6 kg

DRUGS (30)
  1. TADALAFIL [Suspect]
     Active Substance: TADALAFIL
     Indication: Pulmonary hypertension
     Dosage: 6 MG, DAILY
     Route: 048
     Dates: start: 20201009
  2. UPTRAVI [Suspect]
     Active Substance: SELEXIPAG
     Indication: Pulmonary hypertension
     Dosage: 0.025 MG, BID
     Route: 048
     Dates: start: 20190211, end: 20190217
  3. UPTRAVI [Suspect]
     Active Substance: SELEXIPAG
     Dosage: 0.05 MG, BID
     Route: 048
     Dates: start: 20190218, end: 20190224
  4. UPTRAVI [Suspect]
     Active Substance: SELEXIPAG
     Dosage: 0.075 MG, BID
     Route: 048
     Dates: start: 20190225, end: 20190303
  5. UPTRAVI [Suspect]
     Active Substance: SELEXIPAG
     Dosage: 0.1 MG, BID
     Dates: start: 20190304, end: 20190310
  6. UPTRAVI [Suspect]
     Active Substance: SELEXIPAG
     Dosage: 0.125 MG, BID
     Route: 048
     Dates: start: 20190311, end: 20190317
  7. UPTRAVI [Suspect]
     Active Substance: SELEXIPAG
     Dosage: 0.15 MG, BID
     Route: 048
     Dates: start: 20190318, end: 20190324
  8. UPTRAVI [Suspect]
     Active Substance: SELEXIPAG
     Dosage: 0.175 MG, BID
     Route: 048
     Dates: start: 20190325, end: 20190331
  9. UPTRAVI [Suspect]
     Active Substance: SELEXIPAG
     Dosage: 0.2 MG, BID
     Route: 048
     Dates: start: 20190401, end: 20201009
  10. OPSUMIT [Concomitant]
     Active Substance: MACITENTAN
     Indication: Pulmonary hypertension
     Dosage: 1.2 MG, DAILY
     Route: 048
     Dates: end: 20201009
  11. FUROSEMIDE [Concomitant]
     Active Substance: FUROSEMIDE
     Indication: Cardiac failure
     Dosage: 18 MG, DAILY
     Route: 048
     Dates: end: 20201009
  12. FUROSEMIDE [Concomitant]
     Active Substance: FUROSEMIDE
     Dates: end: 20201009
  13. SPIRONOLACTONE [Concomitant]
     Active Substance: SPIRONOLACTONE
     Indication: Cardiac failure
     Dosage: 18 MG, DAILY
     Route: 048
     Dates: end: 20201009
  14. MIYA-BM [Concomitant]
     Active Substance: CLOSTRIDIUM BUTYRICUM SPORES STRAIN M-55
     Indication: Gastrointestinal disorder
     Dosage: 0.6 G, DAILY
     Route: 048
     Dates: end: 20201009
  15. URSO 1A PHARMA [Concomitant]
     Indication: Liver disorder
     Dosage: 15 MG, DAILY
     Route: 048
     Dates: end: 20201009
  16. TRANILAST [Concomitant]
     Active Substance: TRANILAST
     Indication: Excessive granulation tissue
     Dosage: 20 MG, DAILY
     Route: 048
     Dates: end: 20201009
  17. TRANILAST [Concomitant]
     Active Substance: TRANILAST
     Dates: end: 20201009
  18. BERAPROST SODIUM [Concomitant]
     Active Substance: BERAPROST SODIUM
     Indication: Pulmonary hypertension
     Dosage: 10 UG, DAILY
     Route: 048
     Dates: end: 20190211
  19. BERAPROST SODIUM [Concomitant]
     Active Substance: BERAPROST SODIUM
     Dates: end: 20190211
  20. TRICHLORMETHIAZIDE [Concomitant]
     Active Substance: TRICHLORMETHIAZIDE
     Indication: Cardiac failure
     Dosage: 0.48 MG, DAILY
     Route: 048
     Dates: end: 20201009
  21. POTASSIUM GLUCONATE [Concomitant]
     Active Substance: POTASSIUM GLUCONATE
     Indication: Hypokalaemia
     Dosage: 4 G, DAILY
     Route: 048
     Dates: end: 20201009
  22. CERCINE [Concomitant]
     Active Substance: DIAZEPAM
     Indication: Restlessness
     Dosage: 7.2 MG, DAILY
     Route: 048
     Dates: end: 20201009
  23. PROCATEROL HYDROCHLORIDE [Concomitant]
     Active Substance: PROCATEROL HYDROCHLORIDE
     Indication: Asthma
     Dosage: 22.5 UG, DAILY
     Route: 048
     Dates: start: 20190811, end: 20190828
  24. HERBALS [Concomitant]
     Active Substance: HERBALS
     Indication: Insomnia
     Dosage: 0.9 G, DAILY
     Route: 048
     Dates: start: 20190822, end: 20190912
  25. FLUTICASONE PROPIONATE [Concomitant]
     Active Substance: FLUTICASONE PROPIONATE
     Indication: Asthma
     Dosage: UNKNOWN DOSE BUT USING INTERMITTENT
     Dates: start: 20191202, end: 20201009
  26. FAMOTIDINE [Concomitant]
     Active Substance: FAMOTIDINE
     Indication: Prophylaxis
     Dosage: 6 MG, DAILY
     Route: 048
     Dates: start: 20191212, end: 20201009
  27. ALFACALCIDOL [Concomitant]
     Active Substance: ALFACALCIDOL
     Indication: Prophylaxis
     Dosage: 0.1 UG, DAILY
     Route: 048
     Dates: start: 20191212, end: 20201009
  28. SAMSCA [Concomitant]
     Active Substance: TOLVAPTAN
     Indication: Product used for unknown indication
     Dosage: 1 MG, DAILY
     Route: 048
     Dates: start: 20191216, end: 20201009
  29. SULFAMETHOXAZOLE\TRIMETHOPRIM [Concomitant]
     Active Substance: SULFAMETHOXAZOLE\TRIMETHOPRIM
     Indication: Prophylaxis
     Dosage: 0.15 G, DAILY
     Route: 048
     Dates: start: 20191224, end: 20201009
  30. ALFACALCIDOL [Concomitant]
     Active Substance: ALFACALCIDOL
     Indication: Prophylaxis
     Dosage: 0.1 UG, DAILY
     Route: 048
     Dates: start: 20200611, end: 20201009

REACTIONS (2)
  - Interstitial lung disease [Fatal]
  - Pulmonary hypertension [Fatal]

NARRATIVE: CASE EVENT DATE: 20191212
